FAERS Safety Report 25620953 (Version 1)
Quarter: 2025Q3

REPORT INFORMATION
  Report Type: Spontaneous
  Country: US (occurrence: US)
  Receive Date: 20250730
  Receipt Date: 20250730
  Transmission Date: 20251021
  Serious: Yes (Other)
  Sender: AMNEAL
  Company Number: US-AMNEAL-2024-AMRX-04056

PATIENT
  Sex: Male
  Weight: 41.27 kg

DRUGS (1)
  1. BACLOFEN [Suspect]
     Active Substance: BACLOFEN
     Indication: Product used for unknown indication
     Dosage: 906.7 MICROGRAM, 1 /DAY
     Route: 037

REACTIONS (1)
  - Therapeutic product effect variable [Recovered/Resolved]
